FAERS Safety Report 9603141 (Version 1)
Quarter: 2013Q4

REPORT INFORMATION
  Report Type: Spontaneous
  Country: IT (occurrence: IT)
  Receive Date: 20131007
  Receipt Date: 20131007
  Transmission Date: 20140711
  Serious: Yes (Hospitalization)
  Sender: FDA-Public Use
  Company Number: IT-TEVA-434909ISR

PATIENT
  Age: 76 Year
  Sex: Female

DRUGS (5)
  1. METFORMINA TEVA 500MG [Suspect]
     Indication: DIABETES MELLITUS
     Dosage: 1500 MILLIGRAM DAILY;
     Route: 048
     Dates: start: 20130801, end: 20130906
  2. LERCANIDIPINA [Concomitant]
     Dosage: 20 MILLIGRAM DAILY;
     Route: 048
  3. VALSARTAN/IDROCLOROTIAZIDE [Concomitant]
     Dosage: 160 MILLIGRAM DAILY;
     Route: 048
  4. OMEPRAZOLO [Concomitant]
     Dosage: 40 MILLIGRAM DAILY;
     Route: 048
  5. LYRICA 75 MG [Concomitant]
     Dosage: 150 MILLIGRAM DAILY;
     Route: 048

REACTIONS (1)
  - Hypoglycaemia [Recovered/Resolved]
